FAERS Safety Report 10010530 (Version 1)
Quarter: 2014Q1

REPORT INFORMATION
  Report Type: Spontaneous
  Country: US (occurrence: US)
  Receive Date: 20140314
  Receipt Date: 20140314
  Transmission Date: 20141002
  Serious: Yes (Hospitalization)
  Sender: FDA-Public Use
  Company Number: US-BRISTOL-MYERS SQUIBB COMPANY-20389581

PATIENT
  Age: 3 Decade
  Sex: Male

DRUGS (2)
  1. ABILIFY TABS 15 MG [Suspect]
     Indication: SCHIZOPHRENIA
     Route: 048
  2. ABILIFY MAINTENA INJECTION [Suspect]
     Indication: SCHIZOPHRENIA
     Route: 030
     Dates: start: 201312, end: 201312

REACTIONS (1)
  - Schizophrenia [Not Recovered/Not Resolved]
